FAERS Safety Report 19283365 (Version 1)
Quarter: 2021Q2

REPORT INFORMATION
  Report Type: Report from Study
  Country: JP (occurrence: JP)
  Receive Date: 20210521
  Receipt Date: 20210521
  Transmission Date: 20210717
  Serious: Yes (Life-Threatening, Hospitalization, Disabling, Other)
  Sender: FDA-Public Use
  Company Number: JP-TEVA-2021-JP-1915351

PATIENT
  Age: 51 Year
  Sex: Male

DRUGS (14)
  1. TRERIEF [Concomitant]
     Active Substance: ZONISAMIDE
     Dates: start: 20190710, end: 20201019
  2. ADALAT [Concomitant]
     Active Substance: NIFEDIPINE
  3. FEBURIC [Concomitant]
     Active Substance: FEBUXOSTAT
  4. NAUZELIN [Concomitant]
     Active Substance: DOMPERIDONE
  5. PURSENNID [SENNOSIDE A+B CALCIUM] [Concomitant]
     Active Substance: SENNOSIDES A AND B
  6. LEVODOPA [Concomitant]
     Active Substance: LEVODOPA
  7. LOTRIGA [Concomitant]
     Active Substance: OMEGA-3-ACID ETHYL ESTERS
  8. RASAGILINE MESILATE [Suspect]
     Active Substance: RASAGILINE MESYLATE
     Indication: PARKINSON^S DISEASE
     Dosage: 1 MILLIGRAM DAILY;
     Route: 065
     Dates: start: 20190525, end: 20201019
  9. LIVALO [Concomitant]
     Active Substance: PITAVASTATIN CALCIUM
  10. NAUZELIN [Concomitant]
     Active Substance: DOMPERIDONE
  11. ROPINIROLE HYDROCHLORIDE. [Concomitant]
     Active Substance: ROPINIROLE HYDROCHLORIDE
     Dosage: TAPE (INCLUDING POULTICE)
     Dates: start: 20200208, end: 20201019
  12. REZALTAS [Concomitant]
     Active Substance: AZELNIDIPINE\OLMESARTAN MEDOXOMIL
  13. MAGMITT [Concomitant]
     Active Substance: MAGNESIUM OXIDE
  14. AMITIZA [Concomitant]
     Active Substance: LUBIPROSTONE

REACTIONS (1)
  - Cerebral infarction [Recovered/Resolved with Sequelae]

NARRATIVE: CASE EVENT DATE: 20201020
